FAERS Safety Report 9742783 (Version 1)
Quarter: 2013Q4

REPORT INFORMATION
  Report Type: Spontaneous
  Country: UM (occurrence: US)
  Receive Date: 20131210
  Receipt Date: 20131210
  Transmission Date: 20140711
  Serious: Yes (Hospitalization, Other)
  Sender: FDA-Public Use
  Company Number: UM-ALEXION PHARMACEUTICALS INC.-A201304004

PATIENT
  Age: 65 Year
  Sex: Female

DRUGS (2)
  1. SOLIRIS 300MG [Suspect]
     Indication: PAROXYSMAL NOCTURNAL HAEMOGLOBINURIA
     Dosage: UNK
     Route: 042
  2. ENOXAPARIN [Concomitant]

REACTIONS (8)
  - Peripheral ischaemia [Recovered/Resolved with Sequelae]
  - Skin ulcer [Recovered/Resolved]
  - Peripheral artery stenosis [Recovered/Resolved with Sequelae]
  - Wound sepsis [Recovered/Resolved]
  - Graft thrombosis [Recovered/Resolved with Sequelae]
  - Leg amputation [Recovered/Resolved]
  - Paroxysmal nocturnal haemoglobinuria [Recovered/Resolved]
  - Condition aggravated [Recovered/Resolved]
